FAERS Safety Report 20179930 (Version 1)
Quarter: 2021Q4

REPORT INFORMATION
  Report Type: Spontaneous
  Country: US (occurrence: None)
  Receive Date: 20211213
  Receipt Date: 20211213
  Transmission Date: 20220303
  Serious: Yes (Other)
  Sender: FDA-Public Use
  Company Number: None

PATIENT
  Age: 24 Year
  Sex: Female
  Weight: 101.2 kg

DRUGS (2)
  1. BAMLANIVIMAB\ETESEVIMAB [Suspect]
     Active Substance: BAMLANIVIMAB\ETESEVIMAB
     Indication: COVID-19
     Dates: start: 20211202, end: 20211202
  2. BAMLANIVIMAB\ETESEVIMAB [Concomitant]
     Active Substance: BAMLANIVIMAB\ETESEVIMAB
     Dates: start: 20211202, end: 20211202

REACTIONS (3)
  - Infusion related reaction [None]
  - Chest discomfort [None]
  - Dyspnoea [None]

NARRATIVE: CASE EVENT DATE: 20211202
